FAERS Safety Report 20710031 (Version 1)
Quarter: 2022Q2

REPORT INFORMATION
  Report Type: Spontaneous
  Country: DE (occurrence: DE)
  Receive Date: 20220414
  Receipt Date: 20220414
  Transmission Date: 20220721
  Serious: Yes (Other)
  Sender: FDA-Public Use
  Company Number: DE-JNJFOC-20220415691

PATIENT
  Age: 67 Year
  Sex: Male

DRUGS (4)
  1. SPRAVATO [Suspect]
     Active Substance: ESKETAMINE
     Indication: Depression
     Dates: start: 2022
  2. SPRAVATO [Suspect]
     Active Substance: ESKETAMINE
     Dates: start: 2022
  3. MIRTAZAPINE [Concomitant]
     Active Substance: MIRTAZAPINE
  4. QUETIAPINE [Concomitant]
     Active Substance: QUETIAPINE

REACTIONS (4)
  - Suicidal ideation [Unknown]
  - Akathisia [Recovered/Resolved]
  - Illusion [Recovered/Resolved]
  - Blood pressure increased [Unknown]

NARRATIVE: CASE EVENT DATE: 20220101
